FAERS Safety Report 6469696-7 (Version None)
Quarter: 2009Q4

REPORT INFORMATION
  Report Type: 
  Country: None (occurrence: None)
  Receive Date: 20091203
  Receipt Date: 20080812
  Transmission Date: 20100525
  Serious: Yes (Other)
  Sender: FDA-Public Use
  Company Number: US-ELI_LILLY_AND_COMPANY-US200711002606

PATIENT
  Sex: Female
  Weight: 117.91 kg

DRUGS (4)
  1. ZYPREXA [Suspect]
     Dosage: 10 MG, UNK
     Dates: start: 20021023, end: 20070319
  2. ABILIFY [Concomitant]
     Dates: start: 20060101
  3. EFFEXOR [Concomitant]
     Dates: start: 20020101
  4. KLONOPIN [Concomitant]
     Dates: start: 20040101

REACTIONS (6)
  - BLOOD CHOLESTEROL INCREASED [None]
  - HEPATITIS VIRAL [None]
  - HYPERGLYCAEMIA [None]
  - METABOLIC DISORDER [None]
  - TYPE 2 DIABETES MELLITUS [None]
  - VISION BLURRED [None]
